FAERS Safety Report 9278297 (Version 1)
Quarter: 2013Q2

REPORT INFORMATION
  Report Type: Spontaneous
  Country: US (occurrence: US)
  Receive Date: 20130508
  Receipt Date: 20130508
  Transmission Date: 20140414
  Serious: Yes (Death, Hospitalization, Other)
  Sender: FDA-Public Use
  Company Number: US-PFIZER INC-2013140300

PATIENT
  Age: 35 Year
  Sex: Female
  Weight: 75 kg

DRUGS (2)
  1. AROMASIN [Suspect]
     Indication: BREAST CANCER
     Dosage: 25 MG, 1X/DAY
     Route: 048
  2. VITAMIN C [Concomitant]
     Dosage: UNK

REACTIONS (4)
  - Second primary malignancy [Fatal]
  - Hepatic cancer [Fatal]
  - Weight increased [Unknown]
  - Renal disorder [Unknown]
